FAERS Safety Report 20520330 (Version 3)
Quarter: 2022Q2

REPORT INFORMATION
  Report Type: Spontaneous
  Country: US (occurrence: US)
  Receive Date: 20220225
  Receipt Date: 20220624
  Transmission Date: 20220721
  Serious: No
  Sender: FDA-Public Use
  Company Number: US-PFIZER INC-202200157621

PATIENT
  Age: 69 Year
  Sex: Male

DRUGS (1)
  1. INLYTA [Suspect]
     Active Substance: AXITINIB
     Dosage: 5 MG
     Dates: start: 20211216

REACTIONS (4)
  - Dry skin [Unknown]
  - Dysphonia [Unknown]
  - Nasal dryness [Unknown]
  - Diarrhoea [Not Recovered/Not Resolved]
